FAERS Safety Report 17448450 (Version 2)
Quarter: 2020Q1

REPORT INFORMATION
  Report Type: Report from Study
  Country: US (occurrence: US)
  Receive Date: 20200223
  Receipt Date: 20200326
  Transmission Date: 20200409
  Serious: Yes (Death, Life-Threatening, Hospitalization, Other)
  Sender: FDA-Public Use
  Company Number: US-BRISTOL-MYERS SQUIBB COMPANY-BMS-2020-015312

PATIENT
  Age: 68 Year
  Sex: Male
  Weight: 82.6 kg

DRUGS (4)
  1. NIVOLUMAB [Suspect]
     Active Substance: NIVOLUMAB
     Indication: RENAL CELL CARCINOMA
     Dosage: 3 MG/KG OVER 60 MINUTES ON DAYS 1 AND 15, CYCLES 1-21
     Route: 042
     Dates: start: 20190212
  2. CABOZANTINIB [Suspect]
     Active Substance: CABOZANTINIB
     Indication: RENAL CELL CARCINOMA
     Dosage: 40 MILLIGRAM, QD, CYCLES 1-21
     Route: 048
     Dates: start: 20190212
  3. CABOZANTINIB [Suspect]
     Active Substance: CABOZANTINIB
     Indication: PRODUCT USED FOR UNKNOWN INDICATION
     Dosage: 40 MILLIGRAM, QD, CYCLES 22+
     Route: 048
     Dates: end: 20200204
  4. NIVOLUMAB [Suspect]
     Active Substance: NIVOLUMAB
     Indication: PRODUCT USED FOR UNKNOWN INDICATION
     Dosage: 480 M G OVER 60 MINUTES ON DAY 1, CYCLE 22+
     Route: 042
     Dates: end: 20200107

REACTIONS (1)
  - Respiratory failure [Fatal]

NARRATIVE: CASE EVENT DATE: 20200205
